FAERS Safety Report 24636720 (Version 4)
Quarter: 2024Q4

REPORT INFORMATION
  Report Type: Spontaneous
  Country: US (occurrence: US)
  Receive Date: 20241119
  Receipt Date: 20241213
  Transmission Date: 20250114
  Serious: Yes (Other)
  Sender: ABBVIE
  Company Number: US-ABBVIE-6009978

PATIENT
  Age: 79 Year
  Sex: Male
  Weight: 73 kg

DRUGS (2)
  1. CREON [Suspect]
     Active Substance: PANCRELIPASE AMYLASE\PANCRELIPASE LIPASE\PANCRELIPASE PROTEASE
     Indication: Autoimmune pancreatitis
     Dosage: FORM STRENGTH: 36000 UNIT?2 CAPSULE EACH MEAL AND 1 EACH SNACK
     Route: 048
     Dates: end: 20241114
  2. CREON [Suspect]
     Active Substance: PANCRELIPASE AMYLASE\PANCRELIPASE LIPASE\PANCRELIPASE PROTEASE
     Indication: Autoimmune pancreatitis
     Route: 048
     Dates: start: 20010102

REACTIONS (3)
  - Diarrhoea [Recovered/Resolved]
  - Drug ineffective [Not Recovered/Not Resolved]
  - Dyspepsia [Unknown]

NARRATIVE: CASE EVENT DATE: 20241031
